FAERS Safety Report 23422685 (Version 2)
Quarter: 2024Q1

REPORT INFORMATION
  Report Type: Spontaneous
  Country: PL (occurrence: PL)
  Receive Date: 20240119
  Receipt Date: 20240205
  Transmission Date: 20240409
  Serious: No
  Sender: FDA-Public Use
  Company Number: PL-Orion Corporation ORION PHARMA-TELM2024-0001

PATIENT
  Sex: Male
  Weight: 110 kg

DRUGS (5)
  1. METFORMIN [Suspect]
     Active Substance: METFORMIN HYDROCHLORIDE
     Indication: Type 2 diabetes mellitus
     Route: 065
  2. TELMISARTAN [Suspect]
     Active Substance: TELMISARTAN
     Indication: Hypertension
     Route: 065
  3. APIXABAN [Concomitant]
     Active Substance: APIXABAN
     Indication: Product used for unknown indication
     Dosage: UNKNOWN DOSE
     Route: 065
  4. APIXABAN [Concomitant]
     Active Substance: APIXABAN
     Dosage: DOSE WAS INCREASED (MORNING, EVENING)
     Route: 065
  5. TADALAFIL [Concomitant]
     Active Substance: TADALAFIL
     Indication: Sexual dysfunction
     Dosage: INCREASING DOSES OF 10 MG LESS THAN OR EQUAL TO 20 MG ON DEMAND WAS ADDITIONALLY PRESCRIBED FIRST
     Route: 065

REACTIONS (1)
  - Therapy non-responder [Unknown]
